FAERS Safety Report 7483975-6 (Version None)
Quarter: 2011Q2

REPORT INFORMATION
  Report Type: 
  Country: None (occurrence: None)
  Receive Date: 20110513
  Receipt Date: 20110513
  Transmission Date: 20111010
  Serious: No
  Sender: FDA-Public Use
  Company Number: None

PATIENT
  Age: 64 Year
  Sex: Male
  Weight: 99.7913 kg

DRUGS (1)
  1. SALAGEN [Suspect]
     Indication: DRY MOUTH
     Dosage: 1 T.I.D. PO
     Route: 048
     Dates: start: 20110505, end: 20110507

REACTIONS (1)
  - RESPIRATORY DISTRESS [None]
